FAERS Safety Report 12904460 (Version 1)
Quarter: 2016Q4

REPORT INFORMATION
  Report Type: Spontaneous
  Country: SK (occurrence: SK)
  Receive Date: 20161102
  Receipt Date: 20161102
  Transmission Date: 20170207
  Serious: Yes (Hospitalization)
  Sender: FDA-Public Use
  Company Number: SK-SA-2016SA196690

PATIENT
  Age: 66 Year
  Sex: Female
  Weight: 86.2 kg

DRUGS (11)
  1. EZETROL [Concomitant]
     Active Substance: EZETIMIBE
     Dates: start: 20110704
  2. BISOPROLOL/HYDROCHLOROTHIAZIDE [Concomitant]
     Dates: start: 20091116
  3. HELICID [Concomitant]
     Dates: start: 20120217
  4. CLOPIDOGREL [Suspect]
     Active Substance: CLOPIDOGREL BISULFATE
     Indication: ACUTE MYOCARDIAL INFARCTION
     Route: 065
     Dates: start: 20120327
  5. TRIMETAZIDINE [Concomitant]
     Active Substance: TRIMETAZIDINE
     Dates: start: 20080611
  6. STADAMET [Concomitant]
     Active Substance: METFORMIN HYDROCHLORIDE
     Dates: start: 20120215
  7. CANAKINUMAB [Suspect]
     Active Substance: CANAKINUMAB
     Indication: CARDIOVASCULAR EVENT PROPHYLAXIS
     Dosage: DOSE CODE NOT BROKEN
     Route: 058
     Dates: start: 20130206
  8. FURON [Concomitant]
     Active Substance: FUROSEMIDE
     Dates: start: 20080611
  9. ANOPYRIN [Concomitant]
     Active Substance: ASPIRIN
     Dates: start: 20080325
  10. PROCORALAN [Concomitant]
     Active Substance: IVABRADINE
     Dates: start: 20120905
  11. CLOPIDOGREL [Suspect]
     Active Substance: CLOPIDOGREL BISULFATE
     Indication: ACUTE MYOCARDIAL INFARCTION
     Route: 065
     Dates: start: 20120327

REACTIONS (2)
  - Diverticulum intestinal [Not Recovered/Not Resolved]
  - Intestinal haemorrhage [Recovered/Resolved]

NARRATIVE: CASE EVENT DATE: 20140320
